FAERS Safety Report 4308614-4 (Version None)
Quarter: 2004Q1

REPORT INFORMATION
  Report Type: 
  Country: None (occurrence: None)
  Receive Date: 20040226
  Receipt Date: 20030522
  Transmission Date: 20041129
  Serious: Yes (Hospitalization)
  Sender: FDA-Public Use
  Company Number: 105601

PATIENT
  Age: 13 Year
  Sex: Female
  Weight: 40.5 kg

DRUGS (6)
  1. NUTROPIN [Suspect]
     Indication: RENAL FAILURE CHRONIC
     Dosage: 4.8 MG, 6/WEEK, SUBCUTANEOUS
     Route: 058
     Dates: start: 20020516
  2. ROCALTROL [Concomitant]
  3. TUMS EXTRA STRENGTH (CALCIUM CARBONATE) [Concomitant]
  4. EPOGEN [Concomitant]
  5. FERROUS SULFATE TAB [Concomitant]
  6. SODIUM BICARBONATE IN PLASTIC CONTAINER [Concomitant]

REACTIONS (1)
  - SLIPPED FEMORAL EPIPHYSIS [None]
